FAERS Safety Report 24325653 (Version 2)
Quarter: 2025Q1

REPORT INFORMATION
  Report Type: Spontaneous
  Country: JP (occurrence: JP)
  Receive Date: 20240917
  Receipt Date: 20250210
  Transmission Date: 20250408
  Serious: Yes (Other)
  Sender: NOVO NORDISK
  Company Number: JP-NOVOPROD-1280119

PATIENT
  Age: 7 Decade
  Sex: Female
  Weight: 80 kg

DRUGS (1)
  1. SOGROYA [Suspect]
     Active Substance: SOMAPACITAN-BECO
     Indication: Growth hormone deficiency
     Dosage: 1 MG, QW
     Route: 058
     Dates: start: 2023

REACTIONS (1)
  - Neuroendocrine tumour [Unknown]
